FAERS Safety Report 4877662-8 (Version None)
Quarter: 2006Q1

REPORT INFORMATION
  Report Type: 
  Country: None (occurrence: None)
  Receive Date: 20060111
  Receipt Date: 20060104
  Transmission Date: 20060701
  Serious: Yes (Death, Disabling, Other)
  Sender: FDA-Public Use
  Company Number: PHRM2006FR00448

PATIENT
  Age: 78 Year
  Sex: Female

DRUGS (7)
  1. ZOMETA [Suspect]
     Indication: METASTASES TO BONE
     Route: 042
     Dates: start: 20010215, end: 20010315
  2. AVLOCARDYL [Concomitant]
  3. SOLU-MEDROL [Concomitant]
  4. LASILIX [Concomitant]
  5. ESOMEPRAZOLE [Concomitant]
  6. TARDYFERON [Concomitant]
  7. AREDIA [Suspect]
     Indication: METASTASES TO BONE
     Dosage: 90 MG, Q2MO
     Route: 042
     Dates: start: 20010415, end: 20041215

REACTIONS (6)
  - DEATH [None]
  - HYPOAESTHESIA ORAL [None]
  - OSTEONECROSIS [None]
  - PAIN IN JAW [None]
  - RENAL FAILURE [None]
  - X-RAY ABNORMAL [None]
